FAERS Safety Report 5522406-X (Version None)
Quarter: 2007Q4

REPORT INFORMATION
  Report Type: 
  Country: None (occurrence: None)
  Receive Date: 20071120
  Receipt Date: 20071110
  Transmission Date: 20080405
  Serious: Yes (Hospitalization)
  Sender: FDA-Public Use
  Company Number: US-ELI_LILLY_AND_COMPANY-US200711002617

PATIENT
  Sex: Male
  Weight: 131.52 kg

DRUGS (9)
  1. BYETTA [Suspect]
     Dosage: 5 UG, 2/D
     Route: 058
     Dates: start: 20070201, end: 20070301
  2. BYETTA [Suspect]
     Dosage: 10 UG, 2/D
     Route: 058
     Dates: start: 20070301, end: 20071012
  3. BYETTA [Suspect]
     Dosage: 10 UG, 2/D
     Route: 058
     Dates: start: 20071108
  4. GLUCOPHAGE [Concomitant]
     Indication: DIABETES MELLITUS
     Dosage: 500 MG, 2/D
     Route: 048
     Dates: start: 19870101
  5. SYNTHROID [Concomitant]
     Indication: THYROID DISORDER
     Dosage: 200 UG, DAILY (1/D)
     Dates: start: 19950101
  6. LISINOPRIL [Concomitant]
     Dosage: UNK, UNKNOWN
     Dates: end: 20070601
  7. DIOVAN [Concomitant]
     Dosage: UNK, UNKNOWN
     Dates: end: 20070601
  8. NORVASC [Concomitant]
     Dosage: UNK, UNKNOWN
     Dates: end: 20070601
  9. OMACOR [Concomitant]
     Dosage: UNK, DAILY (1/D)

REACTIONS (7)
  - ATRIAL FIBRILLATION [None]
  - CHOLELITHIASIS [None]
  - DECREASED APPETITE [None]
  - HAEMORRHAGE [None]
  - HEPATIC STEATOSIS [None]
  - KNEE ARTHROPLASTY [None]
  - WEIGHT DECREASED [None]
